FAERS Safety Report 12161874 (Version 1)
Quarter: 2016Q1

REPORT INFORMATION
  Report Type: Spontaneous
  Country: JP (occurrence: JP)
  Receive Date: 20160309
  Receipt Date: 20160309
  Transmission Date: 20160526
  Serious: Yes (Death, Life-Threatening)
  Sender: FDA-Public Use
  Company Number: JP-ROCHE-1723368

PATIENT
  Age: 56 Year
  Sex: Female
  Weight: 45 kg

DRUGS (3)
  1. TEMODAL [Concomitant]
     Active Substance: TEMOZOLOMIDE
     Indication: GLIOBLASTOMA
     Dosage: THE FRACTIONATION DOSE FREQUENCY IS UNCERTAIN. ?DOSE INTERVAL UNCERTAINTY
     Route: 048
     Dates: start: 20141007, end: 20141015
  2. TEMODAL [Concomitant]
     Active Substance: TEMOZOLOMIDE
     Indication: GLIOBLASTOMA
     Route: 048
     Dates: start: 20151112, end: 20151116
  3. AVASTIN [Suspect]
     Active Substance: BEVACIZUMAB
     Indication: GLIOBLASTOMA
     Route: 041
     Dates: start: 20141007

REACTIONS (2)
  - Glioblastoma [Fatal]
  - Deep vein thrombosis [Recovering/Resolving]

NARRATIVE: CASE EVENT DATE: 20151110
